FAERS Safety Report 25138638 (Version 1)
Quarter: 2025Q1

REPORT INFORMATION
  Report Type: Spontaneous
  Country: GB (occurrence: GB)
  Receive Date: 20250330
  Receipt Date: 20250330
  Transmission Date: 20250409
  Serious: Yes (Other)
  Sender: ABBVIE
  Company Number: GB-MHRA-TPP27522609C10299516YC1742835676217

PATIENT
  Age: 78 Year
  Sex: Female
  Weight: 89 kg

DRUGS (15)
  1. BIMATOPROST [Suspect]
     Active Substance: BIMATOPROST
     Indication: Ill-defined disorder
     Route: 047
  2. FUROSEMIDE [Concomitant]
     Active Substance: FUROSEMIDE
     Indication: Ill-defined disorder
     Route: 065
     Dates: start: 20241003
  3. LANSOPRAZOLE [Concomitant]
     Active Substance: LANSOPRAZOLE
     Indication: Ill-defined disorder
     Dosage: DOSE FORM - TPP YC - PLEASE RECLASSIFY, TAKE ONE CAPSULE ONCE DAILY
     Route: 065
     Dates: start: 20241003
  4. ALBUTEROL [Concomitant]
     Active Substance: ALBUTEROL
     Indication: Product used for unknown indication
     Route: 065
     Dates: start: 20210827
  5. SALIVEZE [Concomitant]
     Indication: Ill-defined disorder
     Route: 065
     Dates: start: 20250324
  6. OXYCODONE HYDROCHLORIDE [Concomitant]
     Active Substance: OXYCODONE HYDROCHLORIDE
     Indication: Product used for unknown indication
     Route: 065
     Dates: start: 20210827
  7. HYDROMOL [Concomitant]
     Indication: Product used for unknown indication
     Route: 065
     Dates: start: 20240528
  8. HYDROXOCOBALAMIN [Concomitant]
     Active Substance: HYDROXOCOBALAMIN
     Indication: Product used for unknown indication
     Dosage: 1MG EVERY 3 MONTHS VIA INTRAMUSCULAR INJECTION
     Route: 030
     Dates: start: 20231027
  9. OXYCODONE HYDROCHLORIDE [Concomitant]
     Active Substance: OXYCODONE HYDROCHLORIDE
     Indication: Ill-defined disorder
     Route: 065
     Dates: start: 20241209
  10. OXYCODONE HYDROCHLORIDE [Concomitant]
     Active Substance: OXYCODONE HYDROCHLORIDE
     Indication: Product used for unknown indication
     Dates: start: 20210827
  11. ACETAMINOPHEN [Concomitant]
     Active Substance: ACETAMINOPHEN
     Indication: Ill-defined disorder
     Route: 065
     Dates: start: 20241003
  12. BISOPROLOL [Concomitant]
     Active Substance: BISOPROLOL
     Indication: Product used for unknown indication
     Route: 065
     Dates: start: 20241003
  13. IBUPROFEN [Concomitant]
     Active Substance: IBUPROFEN
     Indication: Ill-defined disorder
     Route: 065
     Dates: start: 20241003
  14. SENNA [Concomitant]
     Active Substance: SENNOSIDES
     Indication: Ill-defined disorder
     Route: 065
  15. UMECLIDINIUM BROMIDE\VILANTEROL TRIFENATATE [Concomitant]
     Active Substance: UMECLIDINIUM BROMIDE\VILANTEROL TRIFENATATE
     Indication: Product used for unknown indication
     Dosage: INHALE 1 DOSE DAILY
     Dates: start: 20210827

REACTIONS (3)
  - Blood pressure decreased [Unknown]
  - Hypersensitivity [Unknown]
  - Nausea [Recovered/Resolved]
